FAERS Safety Report 15790837 (Version 1)
Quarter: 2019Q1

REPORT INFORMATION
  Report Type: Report from Study
  Country: US (occurrence: US)
  Receive Date: 20190104
  Receipt Date: 20190104
  Transmission Date: 20190417
  Serious: Yes (Hospitalization)
  Sender: FDA-Public Use
  Company Number: US-ACTELION-A-NJ2016-146603

PATIENT
  Age: 29 Year
  Sex: Female

DRUGS (10)
  1. PREDNISONE. [Concomitant]
     Active Substance: PREDNISONE
  2. PLAQUENIL [Concomitant]
     Active Substance: HYDROXYCHLOROQUINE SULFATE
  3. DICLOFENAC POTASSIUM. [Concomitant]
     Active Substance: DICLOFENAC POTASSIUM
  4. SULFAMETHIZOLE W/TRIMETHOPRIM [Concomitant]
     Active Substance: SULFAMETHOXAZOLE\TRIMETHOPRIM
  5. IMURAN [Concomitant]
     Active Substance: AZATHIOPRINE
  6. BENLYSTA [Concomitant]
     Active Substance: BELIMUMAB
  7. OPSUMIT [Suspect]
     Active Substance: MACITENTAN
     Indication: PULMONARY ARTERIAL HYPERTENSION
     Dosage: 10 MG, QD
     Route: 048
     Dates: start: 20160405
  8. ADEMPAS [Suspect]
     Active Substance: RIOCIGUAT
     Indication: PRODUCT USED FOR UNKNOWN INDICATION
     Dosage: UNK
     Route: 065
  9. HYDROXYCHLOROQUINE [Concomitant]
     Active Substance: HYDROXYCHLOROQUINE
  10. AZATHIOPRINE. [Concomitant]
     Active Substance: AZATHIOPRINE

REACTIONS (11)
  - Tooth extraction [Unknown]
  - Nausea [Unknown]
  - Rash [Unknown]
  - Memory impairment [Not Recovered/Not Resolved]
  - Hypotension [Unknown]
  - Product dose omission [Not Recovered/Not Resolved]
  - Exercise tolerance decreased [Unknown]
  - Hospitalisation [Unknown]
  - Dyspepsia [Unknown]
  - Dizziness [Unknown]
  - Upper respiratory tract infection [Unknown]
